FAERS Safety Report 9358243 (Version 2)
Quarter: 2013Q3

REPORT INFORMATION
  Report Type: Spontaneous
  Country: GB (occurrence: GB)
  Receive Date: 20130620
  Receipt Date: 20130715
  Transmission Date: 20140515
  Serious: Yes (Other)
  Sender: FDA-Public Use
  Company Number: GB-JNJFOC-20130602328

PATIENT
  Age: 71 Year
  Sex: Male
  Weight: 100 kg

DRUGS (7)
  1. XARELTO [Suspect]
     Indication: THROMBOSIS PROPHYLAXIS
     Route: 048
     Dates: start: 20130406, end: 20130503
  2. XARELTO [Suspect]
     Indication: HIP ARTHROPLASTY
     Route: 048
     Dates: start: 20130406, end: 20130503
  3. RAMIPRIL [Concomitant]
     Route: 065
     Dates: start: 2005
  4. AZATHIOPRINE [Concomitant]
     Dosage: 00^50^100
     Route: 065
     Dates: start: 2005
  5. PYRIDOSTIGMINE [Concomitant]
     Route: 065
     Dates: start: 2005
  6. PREDNISOLONE [Concomitant]
     Route: 065
     Dates: start: 2005
  7. IBUPROFEN [Concomitant]
     Route: 065
     Dates: start: 201212, end: 201305

REACTIONS (10)
  - Dermatitis allergic [Recovering/Resolving]
  - Wound secretion [Recovering/Resolving]
  - Rash [Recovering/Resolving]
  - Pruritus [Recovering/Resolving]
  - Urticaria [Recovering/Resolving]
  - Local swelling [Recovering/Resolving]
  - Skin burning sensation [Recovering/Resolving]
  - Insomnia [Unknown]
  - Dermatitis allergic [Recovering/Resolving]
  - Urticaria [Recovering/Resolving]
